FAERS Safety Report 23528067 (Version 1)
Quarter: 2024Q1

REPORT INFORMATION
  Report Type: Spontaneous
  Country: CA (occurrence: CA)
  Receive Date: 20240215
  Receipt Date: 20240215
  Transmission Date: 20240410
  Serious: Yes (Other)
  Sender: FDA-Public Use
  Company Number: CA-FreseniusKabi-FK202402484

PATIENT
  Age: 73 Year
  Sex: Female

DRUGS (4)
  1. IRINOTECAN HYDROCHLORIDE [Suspect]
     Active Substance: IRINOTECAN HYDROCHLORIDE
     Indication: Product used for unknown indication
     Dosage: DOSAGE FORM: SOLUTION INTRAVENOUS
     Route: 042
  2. LEUCOVORIN [Suspect]
     Active Substance: LEUCOVORIN\LEUCOVORIN CALCIUM
     Indication: Product used for unknown indication
     Dosage: FORM: NOT SPECIFIED?ROUTE: INTRAVENOUS (NOT OTHERWISE SPECIFIED)
  3. AVASTIN [Suspect]
     Active Substance: BEVACIZUMAB
     Indication: Product used for unknown indication
     Dosage: FORM: SOLUTION INTRAVENOUS?ROUTE: INTRAVENOUS (NOT OTHERWISE SPECIFIED)
  4. FLUOROURACIL [Suspect]
     Active Substance: FLUOROURACIL
     Indication: Product used for unknown indication
     Dosage: FORM: NOT SPECIFIED?ROUTE: INTRAVENOUS (NOT OTHERWISE SPECIFIED)

REACTIONS (1)
  - Intestinal obstruction [Unknown]
